FAERS Safety Report 12331954 (Version 6)
Quarter: 2018Q3

REPORT INFORMATION
  Report Type: Spontaneous
  Country: US (occurrence: US)
  Receive Date: 20160504
  Receipt Date: 20180905
  Transmission Date: 20181010
  Serious: No
  Sender: FDA-Public Use
  Company Number: US-PFIZER INC-2016204050

PATIENT
  Age: 58 Year
  Sex: Female
  Weight: 50 kg

DRUGS (5)
  1. PREMARIN [Suspect]
     Active Substance: ESTROGENS, CONJUGATED
     Indication: HORMONE LEVEL ABNORMAL
  2. PREMARIN [Suspect]
     Active Substance: ESTROGENS, CONJUGATED
     Indication: VULVOVAGINAL DRYNESS
  3. PREMARIN [Suspect]
     Active Substance: ESTROGENS, CONJUGATED
     Indication: MENOPAUSAL SYMPTOMS
     Dosage: 1.25 MG, DAILY
     Route: 048
     Dates: start: 1980
  4. PREMARIN [Suspect]
     Active Substance: ESTROGENS, CONJUGATED
     Indication: MENOPAUSAL SYMPTOMS
     Dosage: 5 MG, TWICE A WEEK
     Dates: start: 1990
  5. PREMARIN [Suspect]
     Active Substance: ESTROGENS, CONJUGATED
     Indication: HORMONE LEVEL ABNORMAL
     Dosage: 0.625MG ONCE A DAY
     Dates: start: 1980

REACTIONS (13)
  - Headache [Recovered/Resolved]
  - Nausea [Unknown]
  - Poor quality sleep [Unknown]
  - Haemoglobin decreased [Unknown]
  - Feeling abnormal [Recovered/Resolved]
  - Malaise [Unknown]
  - Blood testosterone abnormal [Unknown]
  - Dizziness [Recovered/Resolved]
  - Irritability [Unknown]
  - Emotional disorder [Recovered/Resolved]
  - Weight decreased [Recovered/Resolved]
  - Hormone level abnormal [Recovered/Resolved]
  - Hypovitaminosis [Unknown]

NARRATIVE: CASE EVENT DATE: 201608
